FAERS Safety Report 25763925 (Version 1)
Quarter: 2025Q3

REPORT INFORMATION
  Report Type: Spontaneous
  Country: US (occurrence: US)
  Receive Date: 20250905
  Receipt Date: 20250905
  Transmission Date: 20251021
  Serious: No
  Sender: DOMPE FARMACEUTICI
  Company Number: US-FARMAPROD-202411-3897

PATIENT
  Age: 90 Year
  Sex: Male

DRUGS (9)
  1. OXERVATE [Suspect]
     Active Substance: CENEGERMIN-BKBJ
     Indication: Neurotrophic keratopathy
     Route: 047
     Dates: start: 20241102
  2. OXERVATE [Suspect]
     Active Substance: CENEGERMIN-BKBJ
  3. MURO 128 [Concomitant]
     Active Substance: SODIUM CHLORIDE
  4. MOXIFLOXACIN [Concomitant]
     Active Substance: MOXIFLOXACIN
  5. PRED FORTE [Concomitant]
     Active Substance: PREDNISOLONE ACETATE
  6. FISH OIL [Concomitant]
     Active Substance: FISH OIL
  7. ZENIA VITAMIN [Concomitant]
  8. MACULAR HEALTH FORMULA [Concomitant]
  9. VITAMIN B12 [Concomitant]
     Active Substance: CYANOCOBALAMIN

REACTIONS (6)
  - Product dose omission issue [Unknown]
  - Ocular hyperaemia [Unknown]
  - Eye pain [Unknown]
  - Lacrimation increased [Unknown]
  - Pain in extremity [Unknown]
  - Lagophthalmos [Unknown]

NARRATIVE: CASE EVENT DATE: 20241208
